FAERS Safety Report 8416369-7 (Version None)
Quarter: 2012Q2

REPORT INFORMATION
  Report Type: 
  Country: None (occurrence: None)
  Receive Date: 20120606
  Receipt Date: 20120529
  Transmission Date: 20120825
  Serious: Yes (Hospitalization, Other)
  Sender: FDA-Public Use
  Company Number: CH-JNJFOC-20120516261

PATIENT
  Sex: Male

DRUGS (5)
  1. IBRUPROFEN [Concomitant]
  2. DIPYRONE TAB [Concomitant]
  3. PANTOPRAZOLE [Concomitant]
  4. XARELTO [Suspect]
     Indication: KNEE ARTHROPLASTY
     Route: 048
     Dates: start: 20120320
  5. XARELTO [Suspect]
     Indication: THROMBOSIS PROPHYLAXIS
     Route: 048
     Dates: start: 20120320

REACTIONS (1)
  - DEEP VEIN THROMBOSIS [None]
